FAERS Safety Report 6936789-7 (Version None)
Quarter: 2010Q3

REPORT INFORMATION
  Report Type: 
  Country: None (occurrence: None)
  Receive Date: 20100823
  Receipt Date: 20100812
  Transmission Date: 20110219
  Serious: Yes (Death, Life-Threatening, Hospitalization)
  Sender: FDA-Public Use
  Company Number: AU-MERCK-1008USA01370

PATIENT
  Age: 58 Year
  Sex: Female
  Weight: 85 kg

DRUGS (3)
  1. ZOCOR [Suspect]
     Route: 048
     Dates: start: 20071002
  2. ZOCOR [Suspect]
     Route: 048
  3. GEMFIBROZIL [Suspect]
     Route: 048
     Dates: start: 20080630, end: 20080923

REACTIONS (4)
  - DEATH [None]
  - DRUG INTERACTION [None]
  - RENAL FAILURE ACUTE [None]
  - RHABDOMYOLYSIS [None]
